FAERS Safety Report 10255048 (Version 1)
Quarter: 2014Q2

REPORT INFORMATION
  Report Type: Spontaneous
  Country: US (occurrence: US)
  Receive Date: 20140624
  Receipt Date: 20140624
  Transmission Date: 20141212
  Serious: No
  Sender: FDA-Public Use
  Company Number: US-BAYER-2014-092598

PATIENT
  Age: 46 Year
  Sex: Female

DRUGS (2)
  1. MIRENA [Suspect]
     Indication: CONTRACEPTION
     Dosage: 20 MCG/24HR, CONT
     Route: 015
     Dates: start: 20140306, end: 20140605
  2. MIRENA [Suspect]
     Indication: MENORRHAGIA
     Dosage: 20 MCG/24HR, CONT
     Route: 015
     Dates: start: 20140605, end: 20140610

REACTIONS (12)
  - Device expulsion [None]
  - Chills [Recovered/Resolved]
  - Feeling hot [Recovered/Resolved]
  - Rash [Not Recovered/Not Resolved]
  - Pain [Recovered/Resolved]
  - Motion sickness [Recovered/Resolved]
  - Feeling abnormal [Recovered/Resolved]
  - Skin mass [Not Recovered/Not Resolved]
  - Urticaria [None]
  - Intra-uterine contraceptive device removal [None]
  - Hypersensitivity [None]
  - Urticaria [Not Recovered/Not Resolved]
